FAERS Safety Report 12180513 (Version 1)
Quarter: 2016Q1

REPORT INFORMATION
  Report Type: Spontaneous
  Country: US (occurrence: None)
  Receive Date: 20160314
  Receipt Date: 20160314
  Transmission Date: 20160526
  Serious: Yes (Other)
  Sender: FDA-Public Use
  Company Number: None

PATIENT
  Age: 62 Year
  Sex: Female
  Weight: 61.24 kg

DRUGS (3)
  1. FLOVENT [Concomitant]
     Active Substance: FLUTICASONE PROPIONATE
  2. PROAIR HFA [Suspect]
     Active Substance: ALBUTEROL SULFATE
     Indication: ASTHMA
     Dosage: 2 PUFFS, AS NEEDED, INHALATION
     Route: 055
  3. PROAIR HFA [Concomitant]
     Active Substance: ALBUTEROL SULFATE

REACTIONS (2)
  - Device malfunction [None]
  - Product quality issue [None]

NARRATIVE: CASE EVENT DATE: 20160311
